FAERS Safety Report 7754631-1 (Version None)
Quarter: 2011Q3

REPORT INFORMATION
  Report Type: 
  Country: None (occurrence: None)
  Receive Date: 20110915
  Receipt Date: 20110711
  Transmission Date: 20111222
  Serious: No
  Sender: FDA-Public Use
  Company Number: US-ALLERGAN-1109309US

PATIENT
  Age: 75 Year
  Sex: Female

DRUGS (1)
  1. LUMIGAN [Suspect]
     Indication: GLAUCOMA
     Dosage: 2 GTT, QD
     Route: 047
     Dates: start: 20110629

REACTIONS (8)
  - NASOPHARYNGITIS [None]
  - PARANASAL SINUS HYPERSECRETION [None]
  - HEADACHE [None]
  - COUGH [None]
  - EAR DISCOMFORT [None]
  - EYE IRRITATION [None]
  - PYREXIA [None]
  - DYSPHONIA [None]
